FAERS Safety Report 10037379 (Version 1)
Quarter: 2014Q1

REPORT INFORMATION
  Report Type: Spontaneous
  Country: US (occurrence: None)
  Receive Date: 20140325
  Receipt Date: 20140325
  Transmission Date: 20141002
  Serious: Yes (Life-Threatening)
  Sender: FDA-Public Use
  Company Number: None

PATIENT
  Age: 61 Year
  Sex: Female
  Weight: 81.65 kg

DRUGS (5)
  1. LEVOFLOXACIN [Suspect]
     Indication: SINUSITIS
     Route: 048
     Dates: start: 20141027, end: 20141028
  2. LEVOFLOXACIN [Suspect]
     Indication: BRONCHITIS
     Route: 048
     Dates: start: 20141027, end: 20141028
  3. PRILOSECT [Concomitant]
  4. PULMICORT TURBUHALER [Concomitant]
  5. ALLEGRA [Concomitant]

REACTIONS (5)
  - Asthma [None]
  - Wound [None]
  - Rash [None]
  - Hypersensitivity [None]
  - Product substitution issue [None]
